FAERS Safety Report 22304750 (Version 1)
Quarter: 2023Q2

REPORT INFORMATION
  Report Type: Spontaneous
  Country: US (occurrence: None)
  Receive Date: 20230509
  Receipt Date: 20230509
  Transmission Date: 20230721
  Serious: Yes (Other)
  Sender: FDA-Public Use
  Company Number: None

PATIENT
  Age: 39 Year
  Sex: Female
  Weight: 61.65 kg

DRUGS (3)
  1. DEXTROAMPHET SACCHARAT, AMPHET ASPARTATE, DEXTROAMPHET SULFATE AND AMP [Suspect]
     Active Substance: AMPHETAMINE ASPARTATE\AMPHETAMINE ASPARTATE MONOHYDRATE\AMPHETAMINE SULFATE\DEXTROAMPHETAMINE SACCHA
     Indication: Mental disorder
     Dosage: FREQUENCY : TWICE A DAY;?
     Route: 048
     Dates: start: 20230104
  2. Ib profen [Concomitant]
  3. ZYRTEC [Concomitant]
     Active Substance: CETIRIZINE HYDROCHLORIDE

REACTIONS (13)
  - Product substitution issue [None]
  - Therapeutic response changed [None]
  - Drug ineffective [None]
  - Intrusive thoughts [None]
  - Obsessive thoughts [None]
  - Dyspepsia [None]
  - Migraine [None]
  - Communication disorder [None]
  - Aphasia [None]
  - Cognitive disorder [None]
  - Social avoidant behaviour [None]
  - Inflammation [None]
  - Symptom recurrence [None]

NARRATIVE: CASE EVENT DATE: 20230104
